FAERS Safety Report 5514289-9 (Version None)
Quarter: 2007Q4

REPORT INFORMATION
  Report Type: 
  Country: None (occurrence: None)
  Receive Date: 20071113
  Receipt Date: 20071106
  Transmission Date: 20080405
  Serious: Yes (Hospitalization)
  Sender: FDA-Public Use
  Company Number: US-TYCO HEALTHCARE/MALLINCKRODT-T200701367

PATIENT

DRUGS (27)
  1. OPTIRAY 300 [Suspect]
     Indication: ANGIOGRAM
     Dosage: 570 ML, SINGLE
     Route: 042
     Dates: start: 20070927, end: 20070927
  2. OPTIRAY 300 [Suspect]
     Indication: PERCUTANEOUS CORONARY INTERVENTION
  3. CANGRELOR VS PLACEBO (CODE NOT BROKEN) [Suspect]
     Dosage: 9.2 ML, BOLUS
     Route: 040
     Dates: start: 20070927, end: 20070927
  4. CANGRELOR VS PLACEBO (CODE NOT BROKEN) [Suspect]
     Dosage: 151.28 ML, UNK
     Route: 042
     Dates: start: 20070927, end: 20070927
  5. CLOPIDOGREL [Suspect]
     Dosage: 4 TABLETS,SINGLE
     Route: 048
     Dates: start: 20070927, end: 20070927
  6. CLOPIDOGREL [Suspect]
     Dosage: 4 TABLETS, SINGLE
     Route: 048
     Dates: start: 20070927, end: 20070927
  7. CLOPIDOGREL [Concomitant]
     Dates: start: 20070923
  8. BIVALIRUDIN [Concomitant]
  9. NITROGLYCERIN [Concomitant]
  10. CHANTIX [Concomitant]
     Dates: start: 20070927
  11. DARVOCET [Concomitant]
     Dates: start: 20070929
  12. MORPHINE SULFATE [Concomitant]
     Dates: start: 20070927
  13. CLARITIN [Concomitant]
     Dates: start: 20070928
  14. HABRITOL [Concomitant]
     Dates: start: 20070927
  15. POTASSIUM CHLORIDE [Concomitant]
     Dates: start: 20070927
  16. NOVOLIN 70/30 [Concomitant]
  17. LASIX [Concomitant]
     Dates: start: 20070928, end: 20070928
  18. PROTONIX                           /01263201/ [Concomitant]
  19. TOPROL-XL [Concomitant]
     Dates: start: 20070925
  20. PLAVIX [Concomitant]
  21. LIPITOR [Concomitant]
  22. COLACE [Concomitant]
     Dates: start: 20070926
  23. TRICOR [Concomitant]
  24. DIOVAN                             /01319601/ [Concomitant]
     Dates: start: 20070928
  25. ASPIRIN [Concomitant]
  26. TRENTAL [Concomitant]
     Dates: start: 20070926
  27. RANEXA [Concomitant]
     Dates: start: 20070926

REACTIONS (1)
  - RENAL FAILURE [None]
